FAERS Safety Report 7658256-8 (Version None)
Quarter: 2011Q3

REPORT INFORMATION
  Report Type: 
  Country: None (occurrence: None)
  Receive Date: 20110804
  Receipt Date: 20110804
  Transmission Date: 20111222
  Serious: Yes (Life-Threatening, Hospitalization)
  Sender: FDA-Public Use
  Company Number: None

PATIENT
  Age: 81 Year
  Sex: Female
  Weight: 56.246 kg

DRUGS (1)
  1. LOVENOX [Suspect]
     Indication: DEEP VEIN THROMBOSIS
     Dosage: 60MG SQ BID
     Route: 058
     Dates: start: 20110719, end: 20110722

REACTIONS (2)
  - IRON DEFICIENCY ANAEMIA [None]
  - RETROPERITONEAL HAEMATOMA [None]
